FAERS Safety Report 14558235 (Version 1)
Quarter: 2018Q1

REPORT INFORMATION
  Report Type: Spontaneous
  Country: GB (occurrence: GB)
  Receive Date: 20180221
  Receipt Date: 20180221
  Transmission Date: 20180509
  Serious: Yes (Hospitalization)
  Sender: FDA-Public Use
  Company Number: GXKR2007GB08142

PATIENT
  Age: 19 Year
  Sex: Female

DRUGS (7)
  1. GENTAMICIN. [Interacting]
     Active Substance: GENTAMICIN
     Dosage: 120 MG, BID
     Route: 065
  2. TOBRAMYCIN. [Interacting]
     Active Substance: TOBRAMYCIN
     Dosage: 80 MG, BID
     Route: 065
  3. MEROPENEM. [Interacting]
     Active Substance: MEROPENEM
     Indication: PSEUDOMONAS INFECTION
     Dosage: 1 G, TID
     Route: 065
     Dates: start: 200006
  4. GENTAMICIN. [Suspect]
     Active Substance: GENTAMICIN
     Indication: PSEUDOMONAS INFECTION
     Dosage: 120 MG, TID (360 MG)
     Route: 065
     Dates: start: 200006
  5. AZITHROMYCIN ANHYDROUS. [Suspect]
     Active Substance: AZITHROMYCIN ANHYDROUS
     Indication: PSEUDOMONAS INFECTION
     Dosage: UNK
     Route: 065
  6. MEROPENEM. [Interacting]
     Active Substance: MEROPENEM
     Dosage: 1 MG, TID
     Route: 065
  7. TOBRAMYCIN. [Interacting]
     Active Substance: TOBRAMYCIN
     Indication: PSEUDOMONAS INFECTION
     Dosage: 140 G, TID
     Route: 065

REACTIONS (8)
  - Blood creatinine increased [Recovered/Resolved]
  - Balance disorder [Unknown]
  - Dizziness [Unknown]
  - Acute kidney injury [Recovered/Resolved]
  - Off label use [Unknown]
  - Toxicity to various agents [Unknown]
  - Deafness neurosensory [Unknown]
  - Tinnitus [Unknown]

NARRATIVE: CASE EVENT DATE: 2000
